FAERS Safety Report 4354880-9 (Version None)
Quarter: 2004Q2

REPORT INFORMATION
  Report Type: 
  Country: None (occurrence: None)
  Receive Date: 20040507
  Receipt Date: 20040317
  Transmission Date: 20050107
  Serious: Yes (Other)
  Sender: FDA-Public Use
  Company Number: ES-MERCK-0403ESP00028

PATIENT
  Age: 45 Year
  Sex: Male
  Weight: 77 kg

DRUGS (5)
  1. ASPIRIN [Concomitant]
     Indication: ISCHAEMIC CARDIOMYOPATHY
     Route: 048
  2. ATENOLOL [Concomitant]
     Indication: ISCHAEMIC CARDIOMYOPATHY
     Route: 048
  3. ZETIA [Suspect]
     Indication: HYPERCHOLESTEROLAEMIA
     Route: 048
     Dates: start: 20031101, end: 20040301
  4. INSULIN [Concomitant]
     Indication: DIABETES MELLITUS
     Route: 065
  5. RAMIPRIL [Concomitant]
     Indication: ISCHAEMIC CARDIOMYOPATHY
     Route: 048

REACTIONS (5)
  - BLOOD CREATININE INCREASED [None]
  - BLOOD POTASSIUM INCREASED [None]
  - BLOOD UREA INCREASED [None]
  - MYALGIA [None]
  - RHABDOMYOLYSIS [None]
